FAERS Safety Report 9281202 (Version 1)
Quarter: 2013Q2

REPORT INFORMATION
  Report Type: Spontaneous
  Country: US (occurrence: US)
  Receive Date: 20130509
  Receipt Date: 20130509
  Transmission Date: 20140414
  Serious: Yes (Other)
  Sender: FDA-Public Use
  Company Number: US-ASTRAZENECA-2013SE30145

PATIENT
  Age: 13 Year
  Sex: Male

DRUGS (1)
  1. PROPOFOL [Suspect]
     Indication: SEDATION
     Route: 042

REACTIONS (1)
  - Priapism [Recovered/Resolved]
